FAERS Safety Report 5482583-6 (Version None)
Quarter: 2007Q4

REPORT INFORMATION
  Report Type: 
  Country: None (occurrence: None)
  Receive Date: 20071011
  Receipt Date: 20070719
  Transmission Date: 20080405
  Serious: No
  Sender: FDA-Public Use
  Company Number: A0665296A

PATIENT
  Age: 59 Year
  Sex: Female

DRUGS (7)
  1. TYKERB [Suspect]
     Indication: BREAST CANCER
     Dosage: 1250MG PER DAY
     Route: 048
     Dates: start: 20070606
  2. HERCEPTIN [Concomitant]
  3. ALLEGRA [Concomitant]
  4. ATENOLOL [Concomitant]
  5. FLEXERIL [Concomitant]
  6. XANAX [Concomitant]
  7. ATIVAN [Concomitant]

REACTIONS (2)
  - DIARRHOEA [None]
  - RASH [None]
